FAERS Safety Report 7371683-1 (Version None)
Quarter: 2011Q1

REPORT INFORMATION
  Report Type: 
  Country: None (occurrence: None)
  Receive Date: 20110324
  Receipt Date: 20110315
  Transmission Date: 20110831
  Serious: Yes (Other)
  Sender: FDA-Public Use
  Company Number: GB-NOVOPROD-325048

PATIENT
  Age: 77 Year
  Sex: Female
  Weight: 76.5 kg

DRUGS (1)
  1. LEVEMIR [Suspect]
     Indication: DIABETES MELLITUS
     Dosage: 20 IU, UNK
     Route: 058
     Dates: start: 20110111

REACTIONS (4)
  - DRUG HYPERSENSITIVITY [None]
  - COUGH [None]
  - WHEEZING [None]
  - INJECTION SITE URTICARIA [None]
